FAERS Safety Report 7636768-0 (Version None)
Quarter: 2011Q3

REPORT INFORMATION
  Report Type: 
  Country: None (occurrence: None)
  Receive Date: 20110726
  Receipt Date: 20110718
  Transmission Date: 20111222
  Serious: Yes (Hospitalization, Other)
  Sender: FDA-Public Use
  Company Number: US-ABBOTT-11P-163-0702561-00

PATIENT
  Sex: Female
  Weight: 85.806 kg

DRUGS (17)
  1. FENTANYL [Concomitant]
     Indication: PAIN
     Dosage: PATCH
  2. LYRICA [Concomitant]
     Indication: FIBROMYALGIA
  3. FLEXERIL [Concomitant]
     Indication: FIBROMYALGIA
  4. VITAMIN D [Concomitant]
     Indication: VITAMIN SUPPLEMENTATION
  5. POTASSIUM [Concomitant]
     Indication: MINERAL SUPPLEMENTATION
  6. HUMIRA [Suspect]
     Indication: PSORIATIC ARTHROPATHY
     Dates: start: 20070629, end: 20110621
  7. OMEPRAZOLE [Concomitant]
     Indication: DYSPEPSIA
  8. CLONIDINE [Concomitant]
     Indication: HYPERTENSION
  9. MECLIZINE [Concomitant]
     Indication: VERTIGO
  10. NORCO [Concomitant]
     Indication: PAIN
  11. TEMAZEPAM [Concomitant]
     Indication: INSOMNIA
  12. HUMIRA [Suspect]
     Indication: PSORIASIS
  13. HYDROCHLOROTHIAZIDE [Concomitant]
     Indication: HYPERTENSION
  14. CLOBETASOL PROPIONATE [Concomitant]
     Indication: PSORIASIS
  15. LEVOTHYROXINE SODIUM [Concomitant]
     Indication: HYPOTHYROIDISM
  16. PREMARIN [Concomitant]
     Indication: HORMONE REPLACEMENT THERAPY
  17. XANAX [Concomitant]
     Indication: ANXIETY

REACTIONS (12)
  - THYROID FUNCTION TEST ABNORMAL [None]
  - ANKLE FRACTURE [None]
  - JOINT SWELLING [None]
  - WOUND [None]
  - IMPAIRED HEALING [None]
  - FALL [None]
  - BENIGN EAR NEOPLASM [None]
  - VITAMIN D DECREASED [None]
  - FATIGUE [None]
  - BLOOD GROWTH HORMONE DECREASED [None]
  - OSTEOPOROSIS [None]
  - INFLUENZA [None]
